FAERS Safety Report 22170427 (Version 1)
Quarter: 2023Q2

REPORT INFORMATION
  Report Type: Report from Study
  Country: CO (occurrence: CO)
  Receive Date: 20230404
  Receipt Date: 20230404
  Transmission Date: 20230721
  Serious: Yes (Hospitalization)
  Sender: FDA-Public Use
  Company Number: CO-JNJFOC-20230403269

PATIENT
  Age: 55 Year
  Sex: Female
  Weight: 43 kg

DRUGS (1)
  1. SIMPONI [Suspect]
     Active Substance: GOLIMUMAB
     Indication: Ankylosing spondylitis
     Dosage: LAST ADMINISTRATION: 09-MAR-2023
     Route: 058
     Dates: start: 2020

REACTIONS (1)
  - Pneumonia [Not Recovered/Not Resolved]
